FAERS Safety Report 5867551-4 (Version None)
Quarter: 2008Q3

REPORT INFORMATION
  Report Type: 
  Country: None (occurrence: None)
  Receive Date: 20080902
  Receipt Date: 20070918
  Transmission Date: 20090109
  Serious: No
  Sender: FDA-Public Use
  Company Number: US-ABBOTT-07P-163-0417736-00

PATIENT

DRUGS (2)
  1. DEPAKOTE ER [Suspect]
     Indication: BIPOLAR DISORDER
     Route: 048
  2. DEPAKOTE ER [Suspect]
     Indication: MANIA

REACTIONS (1)
  - HEPATIC ENZYME INCREASED [None]
